FAERS Safety Report 7998019-7 (Version None)
Quarter: 2011Q4

REPORT INFORMATION
  Report Type: 
  Country: None (occurrence: None)
  Receive Date: 20111221
  Receipt Date: 20101118
  Transmission Date: 20120403
  Serious: No
  Sender: FDA-Public Use
  Company Number: US-GLAXOSMITHKLINE-A0893232A

PATIENT
  Age: 55 Year
  Sex: Female

DRUGS (7)
  1. ASPIRIN [Concomitant]
  2. VITAMIN C [Concomitant]
  3. GLUCOSAMINE [Concomitant]
  4. CALCIUM SUPPLEMENT [Concomitant]
  5. NEXIUM [Concomitant]
  6. LOVAZA [Suspect]
     Indication: BLOOD TRIGLYCERIDES INCREASED
     Dosage: 2CAP TWICE PER DAY
     Route: 048
     Dates: start: 20070101
  7. MULTI-VITAMIN [Concomitant]

REACTIONS (2)
  - ERUCTATION [None]
  - PRODUCT QUALITY ISSUE [None]
